FAERS Safety Report 21502280 (Version 3)
Quarter: 2022Q4

REPORT INFORMATION
  Report Type: Spontaneous
  Country: CH (occurrence: CH)
  Receive Date: 20221025
  Receipt Date: 20221027
  Transmission Date: 20230113
  Serious: Yes (Life-Threatening, Hospitalization, Other)
  Sender: FDA-Public Use
  Company Number: CH-MYLANLABS-2022M1110889

PATIENT
  Sex: Male

DRUGS (17)
  1. INSPRA [Suspect]
     Active Substance: EPLERENONE
     Indication: Cardiac failure
     Dosage: 25 MILLIGRAM, QD
     Route: 065
     Dates: start: 20201223, end: 202109
  2. INSPRA [Suspect]
     Active Substance: EPLERENONE
     Dosage: UNK (25)
     Route: 065
     Dates: start: 20220114
  3. TORSEMIDE [Suspect]
     Active Substance: TORSEMIDE
     Indication: Product used for unknown indication
     Dosage: UNK
     Route: 065
  4. ALDACTONE [Suspect]
     Active Substance: SPIRONOLACTONE
     Indication: Product used for unknown indication
     Dosage: UNK
     Route: 065
  5. ASPIRIN [Concomitant]
     Active Substance: ASPIRIN
     Indication: Cardiovascular disorder
     Dosage: 100 MILLIGRAM, AM (1 IN MORNING)
     Route: 065
  6. CLOPIDOGREL [Concomitant]
     Active Substance: CLOPIDOGREL BISULFATE
     Indication: Cardiovascular disorder
     Dosage: 75 MILLIGRAM, AM (1 IN MORNING)
     Route: 065
  7. METOPROLOL SUCCINATE [Concomitant]
     Active Substance: METOPROLOL SUCCINATE
     Indication: Cardiac disorder
     Dosage: 75 MILLIGRAM, QD (1 MORNING, 2 EVENING)
     Route: 065
  8. ENTRESTO [Concomitant]
     Active Substance: SACUBITRIL\VALSARTAN
     Indication: Cardiac failure
     Dosage: 100 MILLIGRAM, QD (1 MORNING, 1 EVENING)
     Route: 065
  9. BROMAZEPAM [Concomitant]
     Active Substance: BROMAZEPAM
     Indication: Myocardial infarction
     Dosage: 3 MILLIGRAM, QD (1/2 IN MORNING, 1/2 IN EVENING)
     Route: 065
  10. TORSEMIDE [Concomitant]
     Active Substance: TORSEMIDE
     Indication: Cardiac disorder
     Dosage: UNK 1(2) IN MORNING, 1/2 (1) IN LUNCHTIME
     Route: 065
  11. ESOMEPRAZOLE [Concomitant]
     Active Substance: ESOMEPRAZOLE
     Indication: Gastrointestinal disorder
     Dosage: 20 MILLIGRAM, AM (1 IN MORNING)
     Route: 065
  12. FEBUXOSTAT [Concomitant]
     Active Substance: FEBUXOSTAT
     Indication: Blood uric acid abnormal
     Dosage: 40 MILLIGRAM, AM (1/2 IN MORNING)
     Route: 065
  13. MOLSIDOMINE [Concomitant]
     Active Substance: MOLSIDOMINE
     Dosage: 12 MILLIGRAM, QD (1 MORNING, 1 LUNCH, 1 EVENING)
     Route: 065
  14. ATORVASTATIN CALCIUM\EZETIMIBE [Concomitant]
     Active Substance: ATORVASTATIN CALCIUM\EZETIMIBE
     Indication: Blood cholesterol abnormal
     Dosage: 1 DOSAGE FORM, AM (1 IN MORNING)
     Route: 065
  15. ZOLPIDEM TARTRATE [Concomitant]
     Active Substance: ZOLPIDEM TARTRATE
     Indication: Sleep disorder
     Dosage: UNK (MAX DOSE 1 IN 24 HRS)
     Route: 065
  16. ACETAMINOPHEN [Concomitant]
     Active Substance: ACETAMINOPHEN
     Dosage: UNK (MAX DOSE 3 IN 24 HRS)
     Route: 065
  17. ISOSORBIDE DINITRATE [Concomitant]
     Active Substance: ISOSORBIDE DINITRATE
     Dosage: UNK (MAX 1 PUMP TOTAL)
     Route: 065

REACTIONS (3)
  - Renal failure [Unknown]
  - Cardiac failure [Unknown]
  - Off label use [Unknown]
